FAERS Safety Report 14567573 (Version 1)
Quarter: 2018Q1

REPORT INFORMATION
  Report Type: Spontaneous
  Country: DE (occurrence: DE)
  Receive Date: 20180223
  Receipt Date: 20180223
  Transmission Date: 20180509
  Serious: Yes (Other)
  Sender: FDA-Public Use
  Company Number: DE-MYLANLABS-2018M1011887

PATIENT
  Age: 51 Year
  Sex: Female

DRUGS (4)
  1. ESTRADIOL. [Suspect]
     Active Substance: ESTRADIOL
     Dosage: 1 PUFF DAILY (1 DOSAGE FORMS, 1 D)
     Route: 062
     Dates: start: 201612, end: 201703
  2. PROGESTERONE. [Suspect]
     Active Substance: PROGESTERONE
     Dosage: 1 CAPSULE (1 DOSAGE FORM, 1 IN 1 D)
     Route: 048
     Dates: start: 201612, end: 201703
  3. ESTRADIOL. [Suspect]
     Active Substance: ESTRADIOL
     Indication: HORMONE REPLACEMENT THERAPY
     Dosage: 1 PUFF DAILY (1 DOSAGE FORM, 1 IN 1)
     Route: 062
     Dates: start: 201508, end: 201610
  4. PROGESTERONE. [Suspect]
     Active Substance: PROGESTERONE
     Indication: HORMONE REPLACEMENT THERAPY
     Dosage: 1 CAPSULE (100 MG, 1 IN 1 D)
     Route: 048
     Dates: start: 201508, end: 201610

REACTIONS (1)
  - Ophthalmic vein thrombosis [Unknown]
